FAERS Safety Report 4470630-X (Version None)
Quarter: 2004Q4

REPORT INFORMATION
  Report Type: 
  Country: None (occurrence: None)
  Receive Date: 20041006
  Receipt Date: 20041006
  Transmission Date: 20050328
  Serious: Yes (Other)
  Sender: FDA-Public Use
  Company Number: None

PATIENT
  Sex: Female
  Weight: 48.9885 kg

DRUGS (1)
  1. DIGOXIN [Suspect]
     Indication: SUPRAVENTRICULAR TACHYCARDIA
     Dosage: ONE DAILY
     Dates: start: 20030929, end: 20031120

REACTIONS (2)
  - HEART RATE ABNORMAL [None]
  - PHARMACEUTICAL PRODUCT COMPLAINT [None]
